FAERS Safety Report 5414293-5 (Version None)
Quarter: 2007Q3

REPORT INFORMATION
  Report Type: 
  Country: None (occurrence: None)
  Receive Date: 20070814
  Receipt Date: 20070802
  Transmission Date: 20080115
  Serious: Yes (Other)
  Sender: FDA-Public Use
  Company Number: US-PFIZER INC-2007065429

PATIENT
  Sex: Female
  Weight: 78.9 kg

DRUGS (9)
  1. CHANTIX [Suspect]
     Indication: SMOKING CESSATION THERAPY
  2. FUROSEMIDE [Concomitant]
     Dosage: DAILY DOSE:40MG
  3. POTASSIUM CHLORIDE [Concomitant]
  4. OMEPRAZOLE [Concomitant]
     Dosage: DAILY DOSE:40MG
  5. HYDROCODONE BITARTRATE [Concomitant]
  6. TOPAMAX [Concomitant]
     Dosage: DAILY DOSE:150MG
  7. CYMBALTA [Concomitant]
  8. TRAZODONE HCL [Concomitant]
     Dosage: DAILY DOSE:300MG
  9. MECLIZINE [Concomitant]

REACTIONS (3)
  - SOMNOLENCE [None]
  - SWELLING [None]
  - WEIGHT INCREASED [None]
